FAERS Safety Report 5956595-X (Version None)
Quarter: 2008Q4

REPORT INFORMATION
  Report Type: 
  Country: None (occurrence: None)
  Receive Date: 20081103
  Receipt Date: 20071126
  Transmission Date: 20090506
  Serious: Yes (Other)
  Sender: FDA-Public Use
  Company Number: DSA_30937_2007

PATIENT
  Age: 29 Year
  Sex: Female

DRUGS (4)
  1. ATIVAN [Suspect]
     Indication: DRUG USE FOR UNKNOWN INDICATION
     Dosage: (1 MG TID ORAL)
     Route: 048
     Dates: start: 20060101, end: 20071122
  2. STRATTERA [Concomitant]
  3. PREVACID [Concomitant]
  4. ZANTAC [Concomitant]

REACTIONS (4)
  - DRUG WITHDRAWAL CONVULSIONS [None]
  - DRUG WITHDRAWAL SYNDROME [None]
  - LOSS OF CONSCIOUSNESS [None]
  - RESPIRATORY DISTRESS [None]
